FAERS Safety Report 19975053 (Version 5)
Quarter: 2022Q3

REPORT INFORMATION
  Report Type: Spontaneous
  Country: BE (occurrence: BE)
  Receive Date: 20211020
  Receipt Date: 20220706
  Transmission Date: 20221027
  Serious: Yes (Hospitalization, Other)
  Sender: FDA-Public Use
  Company Number: BE-002147023-NVSC2021BE151594

PATIENT
  Age: 74 Year
  Sex: Female

DRUGS (1)
  1. ADALIMUMAB [Suspect]
     Active Substance: ADALIMUMAB
     Indication: Psoriatic arthropathy
     Dosage: 40 MILLIGRAM, QW (40 MG, QW)
     Route: 065

REACTIONS (9)
  - Gamma-glutamyltransferase increased [Recovered/Resolved]
  - Immunodeficiency [Unknown]
  - Splenic abscess [Recovering/Resolving]
  - Clostridial infection [Recovering/Resolving]
  - Blood bilirubin increased [Recovered/Resolved]
  - Blood creatine phosphokinase increased [Recovered/Resolved]
  - Hypokalaemia [Recovered/Resolved]
  - Product use issue [Unknown]
  - Off label use [Unknown]
